FAERS Safety Report 15639800 (Version 1)
Quarter: 2018Q4

REPORT INFORMATION
  Report Type: Spontaneous
  Country: IT (occurrence: IT)
  Receive Date: 20181120
  Receipt Date: 20181120
  Transmission Date: 20190205
  Serious: Yes (Hospitalization)
  Sender: FDA-Public Use
  Company Number: PHHY2018IT157603

PATIENT
  Age: 18 Year
  Sex: Male

DRUGS (2)
  1. AZITROMICIN SANDOZ [Suspect]
     Active Substance: AZITHROMYCIN
     Indication: ACNE
     Dosage: 1 DF, UNK
     Route: 065
     Dates: start: 20181023, end: 20181025
  2. AZITROMICIN SANDOZ [Suspect]
     Active Substance: AZITHROMYCIN
     Dosage: 1 DF, UNK
     Route: 065
     Dates: start: 20181030, end: 20181030

REACTIONS (3)
  - Hallucinations, mixed [Unknown]
  - Confusional state [Unknown]
  - Delirium [Unknown]

NARRATIVE: CASE EVENT DATE: 20181028
